FAERS Safety Report 15076352 (Version 1)
Quarter: 2018Q2

REPORT INFORMATION
  Report Type: Report from Study
  Country: US (occurrence: US)
  Receive Date: 20180627
  Receipt Date: 20180627
  Transmission Date: 20180711
  Serious: Yes (Hospitalization, Other)
  Sender: FDA-Public Use
  Company Number: US-BAYER-2018-105103

PATIENT
  Age: 59 Year
  Sex: Male

DRUGS (1)
  1. NEXAVAR [Suspect]
     Active Substance: SORAFENIB
     Indication: HEPATIC CANCER
     Dosage: 200 MG, BID
     Route: 048
     Dates: start: 20180523, end: 2018

REACTIONS (16)
  - Haematochezia [Recovered/Resolved]
  - Nausea [None]
  - Rash [None]
  - Asthenia [None]
  - Haematemesis [Recovered/Resolved]
  - Decreased appetite [None]
  - Faeces discoloured [None]
  - Paracentesis [None]
  - Diarrhoea [None]
  - Retching [None]
  - Off label use [None]
  - Fatigue [None]
  - Paracentesis [None]
  - Vein rupture [None]
  - Decreased appetite [None]
  - Weight decreased [None]

NARRATIVE: CASE EVENT DATE: 2018
